FAERS Safety Report 16393694 (Version 6)
Quarter: 2019Q4

REPORT INFORMATION
  Report Type: Spontaneous
  Country: US (occurrence: US)
  Receive Date: 20190605
  Receipt Date: 20191021
  Transmission Date: 20200122
  Serious: Yes (Other)
  Sender: FDA-Public Use
  Company Number: US-PFIZER INC-2019239340

PATIENT
  Age: 60 Year
  Sex: Female

DRUGS (1)
  1. IBRANCE [Suspect]
     Active Substance: PALBOCICLIB
     Indication: BREAST CANCER FEMALE
     Dosage: 75 MG, UNK

REACTIONS (17)
  - Amnesia [Unknown]
  - Muscular weakness [Unknown]
  - Madarosis [Unknown]
  - Anxiety [Unknown]
  - Blood creatine increased [Unknown]
  - Tumour marker increased [Unknown]
  - Malaise [Unknown]
  - Abdominal pain [Unknown]
  - Delirium [Unknown]
  - White blood cell count decreased [Unknown]
  - Neoplasm progression [Unknown]
  - Nausea [Unknown]
  - Depression [Unknown]
  - Dysstasia [Unknown]
  - Depressed mood [Unknown]
  - Renal disorder [Unknown]
  - Discomfort [Unknown]
